FAERS Safety Report 5995418-X (Version None)
Quarter: 2008Q4

REPORT INFORMATION
  Report Type: 
  Country: None (occurrence: None)
  Receive Date: 20081212
  Receipt Date: 20080924
  Transmission Date: 20090506
  Serious: No
  Sender: FDA-Public Use
  Company Number: US-ABBOTT-08P-163-0478769-00

PATIENT
  Sex: Female
  Weight: 86.26 kg

DRUGS (7)
  1. HUMIRA [Suspect]
     Indication: COLITIS ULCERATIVE
     Route: 058
     Dates: start: 20071201, end: 20080601
  2. HUMIRA [Suspect]
     Dates: start: 20080729
  3. NORGESTIMATE AND ETHINYL ESTRADIOL [Concomitant]
     Indication: CONTRACEPTION
     Route: 048
     Dates: start: 20070101, end: 20080501
  4. NORGESTIMATE AND ETHINYL ESTRADIOL [Concomitant]
     Route: 048
     Dates: start: 20080801
  5. LIALDA [Concomitant]
     Indication: COLITIS
     Route: 048
     Dates: start: 20080729
  6. DICYCLOMINE HCL [Concomitant]
     Indication: ABDOMINAL PAIN UPPER
     Route: 048
     Dates: start: 20060101
  7. NORGESTIMATE AND ETHINYL ESTRADIOL [Concomitant]
     Route: 048
     Dates: start: 20080501, end: 20080801

REACTIONS (9)
  - ABNORMAL BEHAVIOUR [None]
  - COLITIS ULCERATIVE [None]
  - CRYING [None]
  - EMOTIONAL DISTRESS [None]
  - FEAR OF DISEASE [None]
  - FEELING ABNORMAL [None]
  - MEMORY IMPAIRMENT [None]
  - NASOPHARYNGITIS [None]
  - STAPHYLOCOCCAL INFECTION [None]
